FAERS Safety Report 16074648 (Version 1)
Quarter: 2019Q1

REPORT INFORMATION
  Report Type: Spontaneous
  Country: US (occurrence: US)
  Receive Date: 20190314
  Receipt Date: 20190314
  Transmission Date: 20190418
  Serious: No
  Sender: FDA-Public Use
  Company Number: US-NEXGEN PHARMA, INC.-2064024

PATIENT
  Age: 46 Year
  Sex: Female

DRUGS (2)
  1. CHENODAL [Suspect]
     Active Substance: CHENODIOL
     Indication: LIPID METABOLISM DISORDER
     Route: 048
     Dates: start: 20170121
  2. ANTIBIOTICS [Concomitant]
     Active Substance: UNSPECIFIED INGREDIENT

REACTIONS (1)
  - Sinusitis [Recovering/Resolving]
